FAERS Safety Report 5019955-X (Version None)
Quarter: 2006Q2

REPORT INFORMATION
  Report Type: 
  Country: None (occurrence: None)
  Receive Date: 20060601
  Receipt Date: 20060519
  Transmission Date: 20061013
  Serious: Yes (Hospitalization)
  Sender: FDA-Public Use
  Company Number: HQWYE532924MAY06

PATIENT
  Age: 59 Year
  Sex: Male

DRUGS (8)
  1. RAPAMUNE [Suspect]
     Indication: PROPHYLAXIS AGAINST TRANSPLANT REJECTION
     Dosage: 2 MG 1X PER 1 DAY ORAL
     Route: 048
     Dates: start: 20060413
  2. RAPAMUNE [Suspect]
  3. RANITIDINE [Concomitant]
  4. ATENOLOL [Concomitant]
  5. SULFAMETHOXAZOLE + TRIMETHOPRIM [Concomitant]
  6. ALPRAZOLAM [Concomitant]
  7. DELTISONA ^ROUSSEL^ (PREDNISONE) [Concomitant]
  8. MYCOPHENOLATE MOFETIL [Concomitant]

REACTIONS (8)
  - BACTERIAL INFECTION [None]
  - BLOOD CREATININE INCREASED [None]
  - BLOOD SODIUM DECREASED [None]
  - BLOOD UREA INCREASED [None]
  - CANDIDIASIS [None]
  - HAEMATOCRIT DECREASED [None]
  - PURULENCE [None]
  - WOUND COMPLICATION [None]
